FAERS Safety Report 4980430-X (Version None)
Quarter: 2006Q2

REPORT INFORMATION
  Report Type: 
  Country: None (occurrence: None)
  Receive Date: 20060424
  Receipt Date: 20060411
  Transmission Date: 20061013
  Serious: Yes (Death)
  Sender: FDA-Public Use
  Company Number: GB-GLAXOSMITHKLINE-B0420096A

PATIENT
  Age: 74 Year
  Weight: 70 kg

DRUGS (6)
  1. AVANDAMET [Suspect]
     Route: 048
     Dates: start: 20060201, end: 20060227
  2. ATORVASTATIN [Concomitant]
     Dosage: 10MG PER DAY
     Route: 048
     Dates: start: 20000310, end: 20060227
  3. ATENOLOL [Concomitant]
     Dosage: 50MG PER DAY
     Route: 048
     Dates: start: 19990506, end: 20060227
  4. DILTIAZEM [Concomitant]
     Dosage: 60MG PER DAY
     Route: 048
     Dates: start: 19990506, end: 20060227
  5. PROCYCLIDINE HYDROCHLORIDE 2MG TAB [Concomitant]
     Dosage: 5MG PER DAY
     Route: 048
     Dates: start: 19971211, end: 20060227
  6. CHLORPROMAZINE [Concomitant]
     Indication: HICCUPS
     Dosage: 50MG PER DAY
     Route: 048
     Dates: start: 19970617, end: 20060227

REACTIONS (1)
  - ACUTE LEFT VENTRICULAR FAILURE [None]
